FAERS Safety Report 6269201-4 (Version None)
Quarter: 2009Q3

REPORT INFORMATION
  Report Type: 
  Country: None (occurrence: None)
  Receive Date: 20090715
  Receipt Date: 20090710
  Transmission Date: 20100115
  Serious: Yes (Other)
  Sender: FDA-Public Use
  Company Number: US-JNJFOC-20090603039

PATIENT
  Sex: Female
  Weight: 60.78 kg

DRUGS (10)
  1. DURAGESIC-100 [Suspect]
     Route: 062
  2. DURAGESIC-100 [Suspect]
     Route: 062
  3. DURAGESIC-100 [Suspect]
     Route: 062
  4. DURAGESIC-100 [Suspect]
     Route: 062
  5. DURAGESIC-100 [Suspect]
     Indication: LYME DISEASE
     Route: 062
  6. MONOPRIL [Concomitant]
     Indication: BLOOD PRESSURE
     Route: 048
  7. NORVASC [Concomitant]
     Indication: BLOOD PRESSURE
     Route: 048
  8. KLONOPIN [Concomitant]
     Indication: ANXIETY
     Route: 048
  9. SYNTHROID [Concomitant]
     Indication: THYROID DISORDER
     Route: 048
  10. AMBIEN [Concomitant]
     Indication: SLEEP DISORDER
     Route: 048

REACTIONS (10)
  - ASTHENIA [None]
  - ATRIAL FIBRILLATION [None]
  - BALANCE DISORDER [None]
  - CONFUSIONAL STATE [None]
  - DIZZINESS [None]
  - DYSPNOEA [None]
  - LYME DISEASE [None]
  - OVERDOSE [None]
  - PAIN [None]
  - TREATMENT NONCOMPLIANCE [None]
